FAERS Safety Report 6794734-1 (Version None)
Quarter: 2010Q2

REPORT INFORMATION
  Report Type: 
  Country: None (occurrence: None)
  Receive Date: 20100624
  Receipt Date: 20100624
  Transmission Date: 20101027
  Serious: Yes (Other)
  Sender: FDA-Public Use
  Company Number: None

PATIENT
  Age: 88 Year
  Sex: Female
  Weight: 41.7309 kg

DRUGS (1)
  1. FLAGYL [Suspect]
     Dosage: 500 MG 1 3 TIMES DAY ORAL
     Route: 048
     Dates: start: 20100514, end: 20100524

REACTIONS (3)
  - ABDOMINAL DISCOMFORT [None]
  - OEDEMA PERIPHERAL [None]
  - PAIN IN EXTREMITY [None]
